FAERS Safety Report 5742716-0 (Version None)
Quarter: 2008Q2

REPORT INFORMATION
  Report Type: 
  Country: None (occurrence: None)
  Receive Date: 20080515
  Receipt Date: 20080515
  Transmission Date: 20081010
  Serious: Yes (Other)
  Sender: FDA-Public Use
  Company Number: None

PATIENT
  Sex: Female
  Weight: 68.0396 kg

DRUGS (1)
  1. AMLODIPINE [Suspect]
     Indication: HYPERTENSION
     Dosage: 10MG ONCE A DAY ORAL (047)
     Route: 048
     Dates: start: 20080226, end: 20080502

REACTIONS (4)
  - BLOOD PRESSURE INCREASED [None]
  - ERYTHEMA [None]
  - PHARMACEUTICAL PRODUCT COMPLAINT [None]
  - RASH [None]
